FAERS Safety Report 10366183 (Version 1)
Quarter: 2014Q3

REPORT INFORMATION
  Report Type: Spontaneous
  Country: BR (occurrence: BR)
  Receive Date: 20140806
  Receipt Date: 20140806
  Transmission Date: 20150326
  Serious: Yes (Hospitalization, Other)
  Sender: FDA-Public Use
  Company Number: PHHY2014BR094588

PATIENT
  Age: 50 Year
  Sex: Female
  Weight: 68 kg

DRUGS (3)
  1. EUTHYROX [Suspect]
     Active Substance: LEVOTHYROXINE SODIUM
     Dosage: UNK UKN, QD
  2. CALTRATE [Suspect]
     Active Substance: CALCIUM CARBONATE
     Dosage: UNK UKN, QD
  3. FEMARA [Suspect]
     Active Substance: LETROZOLE
     Indication: BREAST CANCER
     Dosage: 2.5 MG, QD
     Dates: start: 201306

REACTIONS (5)
  - Pleural effusion [Unknown]
  - Pulmonary oedema [Unknown]
  - Cough [Unknown]
  - Fatigue [Unknown]
  - Cardiac failure [Unknown]

NARRATIVE: CASE EVENT DATE: 201308
